FAERS Safety Report 9892379 (Version 2)
Quarter: 2014Q1

REPORT INFORMATION
  Report Type: Report from Study
  Country: US (occurrence: US)
  Receive Date: 20140212
  Receipt Date: 20140214
  Transmission Date: 20141002
  Serious: Yes (Hospitalization)
  Sender: FDA-Public Use
  Company Number: US-ACTELION-A-US2014-94861

PATIENT
  Age: 50 Year
  Sex: Male

DRUGS (2)
  1. VENTAVIS [Suspect]
     Indication: PULMONARY ARTERIAL HYPERTENSION
     Dosage: 4 TIMES DAILY
     Route: 055
  2. ADCIRCA [Concomitant]

REACTIONS (3)
  - Atrial fibrillation [Recovering/Resolving]
  - Pneumonia viral [Recovering/Resolving]
  - Corona virus infection [Recovering/Resolving]
